FAERS Safety Report 6837649-2 (Version None)
Quarter: 2010Q3

REPORT INFORMATION
  Report Type: 
  Country: None (occurrence: None)
  Receive Date: 20100713
  Receipt Date: 20070517
  Transmission Date: 20110219
  Serious: No
  Sender: FDA-Public Use
  Company Number: US-PFIZER INC-2007040839

PATIENT
  Sex: Male
  Weight: 93.4 kg

DRUGS (11)
  1. CHANTIX [Suspect]
     Indication: SMOKING CESSATION THERAPY
     Dosage: QD: EVERY DAY
     Dates: start: 20070507
  2. LIPITOR [Concomitant]
  3. METFORMIN [Concomitant]
  4. ENALAPRIL MALEATE [Concomitant]
  5. ATENOLOL [Concomitant]
  6. DIURETICS [Concomitant]
  7. RANITIDINE [Concomitant]
  8. PAXIL [Concomitant]
  9. ACETYLSALICYLIC ACID [Concomitant]
  10. METHOTREXATE [Concomitant]
  11. REMICADE [Concomitant]

REACTIONS (2)
  - NAUSEA [None]
  - VOMITING [None]
